FAERS Safety Report 8907911 (Version 1)
Quarter: 2012Q4

REPORT INFORMATION
  Report Type: 
  Country: US (occurrence: US)
  Receive Date: 20121113
  Receipt Date: 20121113
  Transmission Date: 20130627
  Serious: No
  Sender: FDA-Public Use
  Company Number: US-AMGEN-USASP2012039538

PATIENT
  Age: 59 Year
  Sex: Female

DRUGS (9)
  1. ENBREL [Suspect]
     Indication: PRODUCT USED FOR UNKNOWN INDICATION
     Dosage: 50 mg/ml, qwk
     Route: 058
     Dates: end: 201204
  2. IBUPROFEN [Concomitant]
     Dosage: UNK
  3. EVISTA [Concomitant]
     Dosage: 60 mg, UNK
  4. LIPITOR [Concomitant]
     Dosage: 10 mg, UNK
  5. HUMIRA [Concomitant]
     Dosage: 40MG/0.8
  6. DIOVAN [Concomitant]
     Dosage: 80 mg, UNK
  7. COQ10                              /00517201/ [Concomitant]
     Dosage: 100 mg, UNK
  8. CALCIUM [Concomitant]
     Dosage: 500 mg, UNK
  9. LEVOXYL [Concomitant]
     Dosage: 88 mcg

REACTIONS (1)
  - Therapeutic response decreased [Unknown]
